FAERS Safety Report 10085455 (Version 2)
Quarter: 2014Q2

REPORT INFORMATION
  Report Type: Report from Study
  Country: US (occurrence: US)
  Receive Date: 20140418
  Receipt Date: 20140509
  Transmission Date: 20141212
  Serious: Yes (Hospitalization)
  Sender: FDA-Public Use
  Company Number: US-BIOGENIDEC-2014BI036324

PATIENT
  Sex: Female

DRUGS (4)
  1. AVONEX [Suspect]
     Indication: MULTIPLE SCLEROSIS
     Route: 030
     Dates: start: 20080221, end: 2009
  2. BETASERON [Concomitant]
  3. PRISTIQ [Concomitant]
  4. VIT B12 [Concomitant]
     Indication: VITAMIN B12 DEFICIENCY

REACTIONS (2)
  - Meningitis aseptic [Recovered/Resolved]
  - Multiple sclerosis relapse [Recovered/Resolved]
